FAERS Safety Report 5873797-1 (Version None)
Quarter: 2008Q3

REPORT INFORMATION
  Report Type: 
  Country: None (occurrence: None)
  Receive Date: 20080903
  Receipt Date: 20080903
  Transmission Date: 20090109
  Serious: Yes (Life-Threatening, Other)
  Sender: FDA-Public Use
  Company Number: None

PATIENT
  Age: 55 Year
  Sex: Male
  Weight: 95.2554 kg

DRUGS (1)
  1. TRAMADOL HCL [Suspect]
     Indication: BACK DISORDER
     Dosage: 1-2 TABLETS EVERY 4 HOURS PO
     Route: 048
     Dates: start: 20080814, end: 20080816

REACTIONS (8)
  - ABNORMAL BEHAVIOUR [None]
  - AGGRESSION [None]
  - ALTERED STATE OF CONSCIOUSNESS [None]
  - AMNESIA [None]
  - DRUG PRESCRIBING ERROR [None]
  - IMPRISONMENT [None]
  - INCORRECT DOSE ADMINISTERED [None]
  - ROAD TRAFFIC ACCIDENT [None]
